FAERS Safety Report 25924079 (Version 1)
Quarter: 2025Q4

REPORT INFORMATION
  Report Type: Spontaneous
  Country: EU (occurrence: EU)
  Receive Date: 20251015
  Receipt Date: 20251015
  Transmission Date: 20260118
  Serious: Yes (Other)
  Sender: ANI
  Company Number: EU-ANIPHARMA-2025-NL-000015

PATIENT
  Age: 15 Year
  Sex: Male

DRUGS (1)
  1. ANASTROZOLE [Suspect]
     Active Substance: ANASTROZOLE
     Indication: Secondary hypogonadism
     Dosage: 1 MILLIGRAM
     Route: 048
     Dates: start: 20250410

REACTIONS (5)
  - Hypersomnia [Not Recovered/Not Resolved]
  - Somnambulism [Not Recovered/Not Resolved]
  - Sudden onset of sleep [Unknown]
  - Product use issue [Unknown]
  - Product use in unapproved indication [Unknown]
